FAERS Safety Report 5054930-0 (Version None)
Quarter: 2006Q2

REPORT INFORMATION
  Report Type: 
  Country: None (occurrence: None)
  Receive Date: 20060614
  Receipt Date: 20060302
  Transmission Date: 20061013
  Serious: No
  Sender: FDA-Public Use
  Company Number: US200603000848

PATIENT
  Age: 70 Year
  Sex: Male

DRUGS (7)
  1. CIALIS [Suspect]
     Indication: ERECTILE DYSFUNCTION
     Dosage: 10 MG
     Dates: start: 20050701
  2. WELBUTRIN (BUPROPION HYDROCHLORIDE) [Concomitant]
  3. FLOMAX [Concomitant]
  4. PROTONIX [Concomitant]
  5. MOBIC [Concomitant]
  6. TRAMADOL HCL [Concomitant]
  7. REQUIP [Concomitant]

REACTIONS (1)
  - DRUG INEFFECTIVE [None]
